FAERS Safety Report 10228075 (Version 1)
Quarter: 2014Q2

REPORT INFORMATION
  Report Type: Spontaneous
  Country: GB (occurrence: GB)
  Receive Date: 20140610
  Receipt Date: 20140610
  Transmission Date: 20141212
  Serious: Yes (Hospitalization, Other)
  Sender: FDA-Public Use
  Company Number: GB-ACTAVIS-2014-12490

PATIENT
  Age: 62 Year
  Sex: Male
  Weight: 100 kg

DRUGS (5)
  1. METFORMIN (UNKNOWN) [Suspect]
     Indication: TYPE 2 DIABETES MELLITUS
     Dosage: UNKNOWN
     Route: 065
  2. CANDESARTAN (UNKNOWN) [Suspect]
     Indication: HYPERTENSION
     Dosage: UNKNOWN
     Route: 065
  3. NITROFURANTOIN (UNKNOWN) [Suspect]
     Indication: URINARY TRACT INFECTION
     Dosage: UNKNOWN
     Route: 065
  4. DICLOFENAC (UNKNOWN) [Suspect]
     Indication: ARTHRALGIA
     Dosage: UNKNOWN
     Route: 065
  5. INSULIN [Concomitant]
     Indication: TYPE 2 DIABETES MELLITUS
     Dosage: UNKNOWN
     Route: 065

REACTIONS (1)
  - Renal failure acute [Recovered/Resolved]
